FAERS Safety Report 8063107-6 (Version None)
Quarter: 2012Q1

REPORT INFORMATION
  Report Type: 
  Country: None (occurrence: None)
  Receive Date: 20120123
  Receipt Date: 20120117
  Transmission Date: 20120608
  Serious: Yes (Hospitalization)
  Sender: FDA-Public Use
  Company Number: GB-ROCHE-1031303

PATIENT
  Sex: Female
  Weight: 78 kg

DRUGS (3)
  1. STEROIDS NOS [Concomitant]
  2. MABTHERA [Suspect]
     Indication: RHEUMATOID ARTHRITIS
     Dates: start: 20101217
  3. LEFLUNOMIDE [Concomitant]
     Dates: end: 20110518

REACTIONS (3)
  - SEPSIS [None]
  - CARDIAC FAILURE [None]
  - CEREBRAL INFARCTION [None]
